FAERS Safety Report 5698703-4 (Version None)
Quarter: 2008Q2

REPORT INFORMATION
  Report Type: 
  Country: None (occurrence: None)
  Receive Date: 20080408
  Receipt Date: 20070305
  Transmission Date: 20081010
  Serious: No
  Sender: FDA-Public Use
  Company Number: US-BAYER-US-2007-007867

PATIENT
  Age: 57 Year
  Sex: Female
  Weight: 41 kg

DRUGS (5)
  1. CLIMARA [Suspect]
     Indication: HORMONE REPLACEMENT THERAPY
     Route: 062
     Dates: start: 20030901
  2. NEURONTIN [Concomitant]
     Indication: PAIN
     Route: 048
     Dates: start: 20010101
  3. TRILEPTAL [Concomitant]
     Indication: PAIN
     Route: 048
     Dates: start: 20010101
  4. KLONOPIN [Concomitant]
     Indication: NERVE INJURY
     Route: 048
     Dates: start: 19850101
  5. PRILOSEC [Concomitant]
     Indication: ULCER
     Route: 048
     Dates: start: 20010101

REACTIONS (1)
  - APPLICATION SITE REACTION [None]
